FAERS Safety Report 22288499 (Version 2)
Quarter: 2023Q2

REPORT INFORMATION
  Report Type: Spontaneous
  Country: IN (occurrence: IN)
  Receive Date: 20230505
  Receipt Date: 20230609
  Transmission Date: 20230722
  Serious: Yes (Other)
  Sender: FDA-Public Use
  Company Number: IN-PFIZER INC-PV202300079237

PATIENT
  Sex: Female

DRUGS (1)
  1. CRIZOTINIB [Suspect]
     Active Substance: CRIZOTINIB
     Dosage: 250 MG
     Route: 048

REACTIONS (6)
  - Sinus bradycardia [Unknown]
  - Bundle branch block right [Unknown]
  - QRS axis abnormal [Unknown]
  - Eastern Cooperative Oncology Group performance status abnormal [Unknown]
  - Rash [Unknown]
  - Pruritus [Unknown]
